FAERS Safety Report 6130116-3 (Version None)
Quarter: 2009Q1

REPORT INFORMATION
  Report Type: 
  Country: None (occurrence: None)
  Receive Date: 20090324
  Receipt Date: 20090316
  Transmission Date: 20090719
  Serious: Yes (Other)
  Sender: FDA-Public Use
  Company Number: PHHY2009JP09773

PATIENT
  Sex: Female
  Weight: 61 kg

DRUGS (7)
  1. ZOMETA [Suspect]
     Indication: METASTASES TO BONE
     Dosage: 4 MG, UNK
     Dates: start: 20060615
  2. STARSIS [Concomitant]
     Dosage: 90MG
  3. FEMARA [Concomitant]
     Indication: BREAST CANCER
     Dosage: 2.5MG
     Route: 048
  4. DIOVAN [Concomitant]
     Dosage: 80MG
     Route: 048
  5. ONEALFA [Concomitant]
     Dosage: 1.0?G
     Route: 048
  6. PYDOXAL [Concomitant]
     Dosage: 30MG
     Route: 048
  7. XELODA [Concomitant]
     Indication: BREAST CANCER
     Dosage: 2400MG
     Route: 048

REACTIONS (11)
  - BONE DISORDER [None]
  - ENDODONTIC PROCEDURE [None]
  - GINGIVAL BLEEDING [None]
  - GINGIVAL OPERATION [None]
  - GINGIVAL SWELLING [None]
  - OSTEONECROSIS [None]
  - PAIN [None]
  - PURULENT DISCHARGE [None]
  - TENDERNESS [None]
  - TOOTH DISORDER [None]
  - WOUND TREATMENT [None]
